FAERS Safety Report 11131142 (Version 3)
Quarter: 2017Q4

REPORT INFORMATION
  Report Type: Spontaneous
  Country: US (occurrence: US)
  Receive Date: 20150522
  Receipt Date: 20171129
  Transmission Date: 20180320
  Serious: Yes (Other)
  Sender: FDA-Public Use
  Company Number: US-SUN PHARMACEUTICAL INDUSTRIES LTD-2015US-97624

PATIENT
  Age: 54 Year
  Sex: Male

DRUGS (3)
  1. TEMOZOLOMIDE. [Suspect]
     Active Substance: TEMOZOLOMIDE
     Indication: MULTIPLE ENDOCRINE NEOPLASIA TYPE 1
     Dosage: 150 MG/M 2 DIVIDED INTO TWICE DAILY ORAL DOSES ON DAYS 10-14 OF THE 28-DAY CYCLE, WITH 15-28D OFF
     Route: 048
  2. CAPECITABINE. [Suspect]
     Active Substance: CAPECITABINE
     Indication: MULTIPLE ENDOCRINE NEOPLASIA TYPE 1
     Dosage: 1,000 MG TWICE DAILY (TOTAL DOSE TWICE DAILY) FOR DAYS 1-14 OF A 28-DAY CYCLE WITH DAYS 15-28 OFF
     Route: 048
  3. SANDOSTATIN LAR DEPOT [Concomitant]
     Active Substance: OCTREOTIDE ACETATE
     Indication: MULTIPLE ENDOCRINE NEOPLASIA TYPE 1
     Dosage: UP TO 60 MG/MONTH
     Route: 065

REACTIONS (4)
  - Therapeutic response decreased [Unknown]
  - Malignant neoplasm progression [Unknown]
  - Nausea [Unknown]
  - Diarrhoea [Unknown]
